FAERS Safety Report 9292994 (Version 4)
Quarter: 2013Q3

REPORT INFORMATION
  Report Type: Spontaneous
  Country: US (occurrence: None)
  Receive Date: 20130513
  Receipt Date: 20130703
  Transmission Date: 20140515
  Serious: Yes (Hospitalization, Other)
  Sender: FDA-Public Use
  Company Number: 2013-000345

PATIENT
  Age: 65 Year
  Sex: Female
  Weight: 53.5 kg

DRUGS (14)
  1. ACTONEL [Suspect]
     Indication: OSTEOPENIA
     Route: 048
     Dates: start: 20040204
  2. ACTONEL [Suspect]
     Indication: OSTEOPENIA
     Route: 048
     Dates: start: 20090128, end: 200902
  3. FOSAMAX [Suspect]
     Indication: OSTEOPOROSIS
     Route: 048
     Dates: start: 20010905, end: 200510
  4. FOSAMAX [Suspect]
     Indication: OSTEOPOROSIS PROPHYLAXIS
     Route: 048
     Dates: start: 20010905, end: 200510
  5. FOSAMAX [Suspect]
     Indication: OSTEOPENIA
     Route: 048
     Dates: start: 20010905, end: 200510
  6. BONIVA [Suspect]
     Indication: OSTEOPENIA
     Route: 048
     Dates: start: 200902
  7. DIOVAN (VALSARTAN) [Concomitant]
  8. TOPROL (METOPROLOL SUCCINATE) [Concomitant]
  9. CALAN/00014302/ (VERAPAMIL HYDROCHLORIDE) [Concomitant]
  10. WELLBUTRIN (BUPROPION HYDROCHLORIDE) [Concomitant]
  11. LOVASTATIN (LOVASTATIN) [Concomitant]
  12. PRAVASTATIN (PRAVASTATIN) [Concomitant]
  13. ASPIRIN (ACETYLSALICYLIC ACID) [Concomitant]
  14. PLAVIX (CLOPIDOGREL BISULFATE) [Concomitant]

REACTIONS (9)
  - Atypical femur fracture [None]
  - Arthralgia [None]
  - Fracture displacement [None]
  - Bone disorder [None]
  - Stress fracture [None]
  - Low turnover osteopathy [None]
  - Fall [None]
  - Economic problem [None]
  - Osteogenesis imperfecta [None]
